FAERS Safety Report 10398821 (Version 2)
Quarter: 2014Q3

REPORT INFORMATION
  Report Type: Spontaneous
  Country: US (occurrence: None)
  Receive Date: 20140819
  Receipt Date: 20140919
  Transmission Date: 20150326
  Serious: Yes (Other)
  Sender: FDA-Public Use
  Company Number: 2014-US-010076

PATIENT
  Age: 52 Year
  Sex: Female

DRUGS (1)
  1. XYREM [Suspect]
     Active Substance: SODIUM OXYBATE
     Indication: NARCOLEPSY
     Route: 048
     Dates: start: 200911, end: 2009

REACTIONS (5)
  - Middle ear effusion [None]
  - Vertigo [None]
  - Thyroid neoplasm [None]
  - Hypothyroidism [None]
  - Endodontic procedure [None]

NARRATIVE: CASE EVENT DATE: 201406
